FAERS Safety Report 7512295-6 (Version None)
Quarter: 2011Q2

REPORT INFORMATION
  Report Type: 
  Country: None (occurrence: None)
  Receive Date: 20110525
  Receipt Date: 20110525
  Transmission Date: 20111010
  Serious: Yes (Disabling)
  Sender: FDA-Public Use
  Company Number: None

PATIENT
  Age: 80 Year
  Sex: Male
  Weight: 65.9 kg

DRUGS (1)
  1. ACTONEL [Suspect]
     Indication: OSTEOPOROSIS
     Dosage: 150 MG ONCE MONTHLY ORAL 047
     Route: 048
     Dates: start: 20100902

REACTIONS (7)
  - TOOTH DISCOLOURATION [None]
  - MYALGIA [None]
  - ARTHRALGIA [None]
  - TOOTH LOSS [None]
  - ASTHMA [None]
  - NAUSEA [None]
  - TOOTH EROSION [None]
